FAERS Safety Report 8867480 (Version 1)
Quarter: 2012Q4

REPORT INFORMATION
  Report Type: 
  Country: US (occurrence: US)
  Receive Date: 20121025
  Receipt Date: 20121025
  Transmission Date: 20130627
  Serious: Yes (Hospitalization)
  Sender: FDA-Public Use
  Company Number: US-AMGEN-USASP2012016913

PATIENT
  Age: 69 Year
  Sex: Male

DRUGS (7)
  1. ENBREL [Suspect]
     Indication: PRODUCT USED FOR UNKNOWN INDICATION
     Dosage: 50 mg, qwk
     Route: 058
  2. METHOTREXATE [Concomitant]
     Dosage: 2.5 mg, UNK
  3. FOLIC ACID [Concomitant]
     Dosage: 1 mg, UNK
  4. ASPIRIN LOW [Concomitant]
     Dosage: 81 mg, UNK
  5. PRILOSEC                           /00661201/ [Concomitant]
     Dosage: 20 mg, UNK
  6. ATENOLOL [Concomitant]
     Dosage: 25 mg, UNK
  7. FISH OIL [Concomitant]
     Dosage: UNK

REACTIONS (1)
  - Pneumonia [Unknown]
